FAERS Safety Report 24843304 (Version 1)
Quarter: 2025Q1

REPORT INFORMATION
  Report Type: Report from Study
  Country: US (occurrence: US)
  Receive Date: 20250115
  Receipt Date: 20250115
  Transmission Date: 20250409
  Serious: Yes (Other)
  Sender: SPRINGWORKS THERAPEUTIC
  Company Number: US-SPRINGWORKS THERAPEUTICS-SW-002181

PATIENT
  Age: 56 Year
  Sex: Female

DRUGS (3)
  1. NIROGACESTAT [Suspect]
     Active Substance: NIROGACESTAT
     Indication: Bone neoplasm
  2. NIROGACESTAT [Suspect]
     Active Substance: NIROGACESTAT
     Indication: Soft tissue neoplasm
     Dosage: 100 MILLIGRAM, BID
     Route: 048
     Dates: start: 202411
  3. NIROGACESTAT [Suspect]
     Active Substance: NIROGACESTAT
     Indication: Neoplasm skin
     Dosage: 50  MILLIGRAM, BID
     Route: 048
     Dates: start: 20241203

REACTIONS (9)
  - Hepatotoxicity [Unknown]
  - Tongue ulceration [Unknown]
  - Sleep disorder [Unknown]
  - Hepatic enzyme increased [Unknown]
  - Dermatitis acneiform [Unknown]
  - Fatigue [Unknown]
  - Off label use [Unknown]
  - Product supply issue [Unknown]
  - Intentional underdose [Unknown]

NARRATIVE: CASE EVENT DATE: 20241101
